FAERS Safety Report 9173813 (Version 1)
Quarter: 2013Q1

REPORT INFORMATION
  Report Type: Spontaneous
  Country: US (occurrence: None)
  Receive Date: 20130318
  Receipt Date: 20130318
  Transmission Date: 20140127
  Serious: Yes (Death, Hospitalization)
  Sender: FDA-Public Use
  Company Number: None

PATIENT
  Age: 72 Year
  Sex: Female
  Weight: 54.89 kg

DRUGS (2)
  1. TARCEVA 100MG GENENTECH [Suspect]
     Indication: LUNG NEOPLASM MALIGNANT
     Dates: start: 20130211, end: 20130222
  2. TARCEVA 100MG GENENTECH [Suspect]
     Indication: LUNG NEOPLASM MALIGNANT
     Dates: start: 20130211, end: 20130222

REACTIONS (2)
  - Vomiting [None]
  - Hypophagia [None]
